FAERS Safety Report 4879631-0 (Version None)
Quarter: 2006Q1

REPORT INFORMATION
  Report Type: 
  Country: None (occurrence: None)
  Receive Date: 20060113
  Receipt Date: 20060109
  Transmission Date: 20060701
  Serious: Yes (Death, Life-Threatening, Other)
  Sender: FDA-Public Use
  Company Number: GB-JNJFOC-20051104235

PATIENT
  Sex: Male
  Weight: 69 kg

DRUGS (8)
  1. REMICADE [Suspect]
     Indication: RHEUMATOID ARTHRITIS
     Route: 042
  2. METHOTREXATE [Concomitant]
     Route: 065
  3. CACIT [Concomitant]
     Route: 065
  4. CACIT [Concomitant]
     Route: 065
  5. DICLOFENAC [Concomitant]
     Route: 065
  6. FENTANYL [Concomitant]
     Route: 065
  7. NEURONTIN [Concomitant]
     Route: 065
  8. TRAMADOL HCL [Concomitant]
     Route: 065

REACTIONS (2)
  - CARDIAC ARREST [None]
  - MYOCARDIAL INFARCTION [None]
